FAERS Safety Report 10477342 (Version 1)
Quarter: 2014Q3

REPORT INFORMATION
  Report Type: Spontaneous
  Country: US (occurrence: None)
  Receive Date: 20140925
  Receipt Date: 20140925
  Transmission Date: 20150326
  Serious: Yes (Hospitalization, Disabling)
  Sender: FDA-Public Use
  Company Number: None

PATIENT
  Age: 54 Year
  Sex: Female
  Weight: 57.9 kg

DRUGS (8)
  1. PANTOPRAZOLE [Concomitant]
     Active Substance: PANTOPRAZOLE SODIUM
  2. SOVALDI [Suspect]
     Active Substance: SOFOSBUVIR
  3. LINEZOLID. [Concomitant]
     Active Substance: LINEZOLID
  4. LACTULOSE. [Concomitant]
     Active Substance: LACTULOSE
  5. PIPERACILLIN/TAZOBACTAM [Concomitant]
     Active Substance: PIPERACILLIN SODIUM\TAZOBACTAM SODIUM
  6. RIBAVIRIN. [Suspect]
     Active Substance: RIBAVIRIN
  7. RIFAXIMIN [Concomitant]
     Active Substance: RIFAXIMIN
  8. VANCOMYCIN [Concomitant]
     Active Substance: VANCOMYCIN

REACTIONS (2)
  - No therapeutic response [None]
  - Encephalopathy [None]

NARRATIVE: CASE EVENT DATE: 20140804
